FAERS Safety Report 6533109-7 (Version None)
Quarter: 2010Q1

REPORT INFORMATION
  Report Type: 
  Country: None (occurrence: None)
  Receive Date: 20100111
  Receipt Date: 20100105
  Transmission Date: 20100710
  Serious: Yes (Other)
  Sender: FDA-Public Use
  Company Number: GB-PFIZER INC-2009294833

PATIENT
  Age: 42 Year
  Sex: Male

DRUGS (1)
  1. GABAPENTIN [Suspect]
     Dosage: 900 MG, 3X/DAY
     Route: 048
     Dates: start: 20090301

REACTIONS (1)
  - OESOPHAGEAL STENOSIS [None]
